FAERS Safety Report 5003154-1 (Version None)
Quarter: 2006Q2

REPORT INFORMATION
  Report Type: 
  Country: None (occurrence: None)
  Receive Date: 20060512
  Receipt Date: 20060424
  Transmission Date: 20061013
  Serious: Yes (Hospitalization, Other)
  Sender: FDA-Public Use
  Company Number: USA021022493

PATIENT
  Age: 53 Year
  Sex: Female
  Weight: 57.3 kg

DRUGS (9)
  1. FORTEO [Suspect]
     Indication: OSTEOPOROSIS
     Dosage: 20 UG, DAILY (1/D)
     Dates: start: 20030301
  2. VANCOCIN (VANCOMYCIN HYDROCHLORIDE) CAPSULE [Suspect]
     Indication: CLOSTRIDIAL INFECTION
     Dosage: 125 MG, 4/D, ORAL
     Route: 048
     Dates: start: 20020301
  3. DURAGESIC-100 [Concomitant]
  4. FLAGYL [Concomitant]
  5. HYOSCYAMINE [Concomitant]
  6. AROPINE W/DIPHENOXYLATE [Concomitant]
  7. ADDERALL 10 [Concomitant]
  8. VALIUM [Concomitant]
  9. FORTEN PEN [Concomitant]

REACTIONS (20)
  - CLOSTRIDIAL INFECTION [None]
  - DIARRHOEA [None]
  - DIFFICULTY IN WALKING [None]
  - DISEASE RECURRENCE [None]
  - EYE SWELLING [None]
  - HEMIPLEGIA [None]
  - INJECTION SITE BRUISING [None]
  - INJECTION SITE ERYTHEMA [None]
  - INJECTION SITE INDURATION [None]
  - INJECTION SITE PAIN [None]
  - MUSCLE ATROPHY [None]
  - PRURITUS [None]
  - RASH [None]
  - ROAD TRAFFIC ACCIDENT [None]
  - SPINAL COMPRESSION FRACTURE [None]
  - SWELLING FACE [None]
  - THROMBOSIS [None]
  - URTICARIA [None]
  - VISUAL ACUITY REDUCED [None]
  - WEIGHT DECREASED [None]
